FAERS Safety Report 6912839-9 (Version None)
Quarter: 2010Q3

REPORT INFORMATION
  Report Type: 
  Country: None (occurrence: None)
  Receive Date: 20100806
  Receipt Date: 20090123
  Transmission Date: 20110219
  Serious: No
  Sender: FDA-Public Use
  Company Number: US-PFIZER INC-2009160241

PATIENT
  Age: 72 Year
  Sex: Male
  Weight: 75.7 kg

DRUGS (1)
  1. DETROL LA [Suspect]
     Indication: HYPERTONIC BLADDER
     Dates: start: 20090114, end: 20090121

REACTIONS (3)
  - DEHYDRATION [None]
  - GASTROENTERITIS VIRAL [None]
  - HEART RATE INCREASED [None]
